FAERS Safety Report 7389450-1 (Version None)
Quarter: 2011Q2

REPORT INFORMATION
  Report Type: 
  Country: None (occurrence: None)
  Receive Date: 20110401
  Receipt Date: 20110328
  Transmission Date: 20111010
  Serious: Yes (Death, Other)
  Sender: FDA-Public Use
  Company Number: US-MEDIMMUNE-MEDI-0011708

PATIENT
  Sex: Male

DRUGS (2)
  1. SYNAGIS [Suspect]
     Route: 030
     Dates: start: 20100226, end: 20100226
  2. SYNAGIS [Suspect]
     Route: 030
     Dates: start: 20100327, end: 20100422

REACTIONS (6)
  - GASTROOESOPHAGEAL REFLUX DISEASE [None]
  - MENINGITIS BACTERIAL [None]
  - STAPHYLOCOCCAL INFECTION [None]
  - DEVELOPMENTAL DELAY [None]
  - INTRAVENTRICULAR HAEMORRHAGE [None]
  - ANAEMIA [None]
